FAERS Safety Report 16959176 (Version 1)
Quarter: 2019Q4

REPORT INFORMATION
  Report Type: Report from Study
  Country: US (occurrence: US)
  Receive Date: 20191024
  Receipt Date: 20191024
  Transmission Date: 20200122
  Serious: Yes (Death)
  Sender: FDA-Public Use
  Company Number: NVSC2019US013552

PATIENT
  Age: 69 Year
  Sex: Male

DRUGS (2)
  1. ZYKADIA [Suspect]
     Active Substance: CERITINIB
     Indication: MALIGNANT MELANOMA
     Dosage: 300 MG
     Route: 048
  2. ZYKADIA [Suspect]
     Active Substance: CERITINIB
     Dosage: 450 MG
     Route: 048

REACTIONS (1)
  - Death [Fatal]

NARRATIVE: CASE EVENT DATE: 20191014
